FAERS Safety Report 14012128 (Version 1)
Quarter: 2017Q3

REPORT INFORMATION
  Report Type: Spontaneous
  Country: US (occurrence: US)
  Receive Date: 20170926
  Receipt Date: 20170926
  Transmission Date: 20171128
  Serious: No
  Sender: FDA-Public Use
  Company Number: US-ASTRAZENECA-2013SE53427

PATIENT
  Age: 81 Year
  Sex: Female
  Weight: 56.7 kg

DRUGS (10)
  1. LANTUS [Concomitant]
     Active Substance: INSULIN GLARGINE
     Dosage: DAILY
     Route: 048
  2. BYDUREON [Suspect]
     Active Substance: EXENATIDE
     Indication: TYPE 2 DIABETES MELLITUS
     Route: 058
     Dates: start: 20130228
  3. METFORMIN HYDROCHLORIDE. [Suspect]
     Active Substance: METFORMIN HYDROCHLORIDE
     Dosage: 850 MG, THREE TIMES A DAY (NON AZ PRODUCT)
     Route: 048
  4. BYETTA [Suspect]
     Active Substance: EXENATIDE
     Indication: TYPE 2 DIABETES MELLITUS
     Route: 058
     Dates: start: 2005
  5. NYACIN [Concomitant]
     Route: 048
  6. FENOFIBRATE. [Concomitant]
     Active Substance: FENOFIBRATE
     Route: 048
  7. ATORVASTATIN [Concomitant]
     Active Substance: ATORVASTATIN
     Route: 048
  8. COQ10 [Concomitant]
     Active Substance: UBIDECARENONE
     Route: 048
  9. HYDROCHLOROTHIAZIDE. [Concomitant]
     Active Substance: HYDROCHLOROTHIAZIDE
     Indication: FLUID RETENTION
     Route: 048
  10. LOSARTAN. [Concomitant]
     Active Substance: LOSARTAN
     Route: 048

REACTIONS (6)
  - Injection site mass [Recovering/Resolving]
  - Weight decreased [Unknown]
  - Blood glucose increased [Unknown]
  - Product storage error [Unknown]
  - Injection site extravasation [Unknown]
  - Underdose [Unknown]

NARRATIVE: CASE EVENT DATE: 2013
